FAERS Safety Report 9306225 (Version 1)
Quarter: 2013Q2

REPORT INFORMATION
  Report Type: Spontaneous
  Country: IT (occurrence: IT)
  Receive Date: 20130523
  Receipt Date: 20130523
  Transmission Date: 20140414
  Serious: Yes (Hospitalization)
  Sender: FDA-Public Use
  Company Number: IT-ASTRAZENECA-2013SE34160

PATIENT
  Age: 29840 Day
  Sex: Male

DRUGS (2)
  1. SEROQUEL [Suspect]
     Indication: DEMENTIA
     Route: 048
     Dates: start: 20130101
  2. PAROXETINE [Suspect]
     Indication: DEMENTIA
     Route: 048
     Dates: start: 20130101

REACTIONS (2)
  - Coma [Recovered/Resolved]
  - Intentional drug misuse [Unknown]
